FAERS Safety Report 19479825 (Version 1)
Quarter: 2021Q2

REPORT INFORMATION
  Report Type: Spontaneous
  Country: KR (occurrence: KR)
  Receive Date: 20210630
  Receipt Date: 20210630
  Transmission Date: 20210717
  Serious: Yes (Hospitalization)
  Sender: FDA-Public Use
  Company Number: KR-GW PHARMA-202106KRGW03106

PATIENT

DRUGS (1)
  1. EPIDIOLEX [Suspect]
     Active Substance: CANNABIDIOL
     Indication: PRODUCT USED FOR UNKNOWN INDICATION
     Dosage: 1500 MILLIGRAM, BID
     Route: 048

REACTIONS (3)
  - Dyspnoea [Unknown]
  - Prescribed overdose [Unknown]
  - Salivary hypersecretion [Unknown]
